FAERS Safety Report 7213788-1 (Version None)
Quarter: 2011Q1

REPORT INFORMATION
  Report Type: 
  Country: None (occurrence: None)
  Receive Date: 20110106
  Receipt Date: 20101227
  Transmission Date: 20110831
  Serious: Yes (Hospitalization, Other)
  Sender: FDA-Public Use
  Company Number: US-ELI_LILLY_AND_COMPANY-US201101000213

PATIENT
  Age: 80 Year
  Sex: Female

DRUGS (4)
  1. HUMALOG [Suspect]
     Indication: DIABETES MELLITUS
     Dosage: 6 U, EACH MORNING
     Dates: start: 20100101
  2. HUMALOG [Suspect]
     Dosage: 11 U, OTHER
     Dates: start: 20100101
  3. LEVEMIR [Concomitant]
  4. HUMALOG [Suspect]
     Dosage: 16 U, EACH EVENING
     Dates: start: 20100101

REACTIONS (5)
  - GASTROINTESTINAL NEOPLASM [None]
  - GOITRE [None]
  - NEOPLASM MALIGNANT [None]
  - LYMPHOMA [None]
  - STENT PLACEMENT [None]
